FAERS Safety Report 6544630-X (Version None)
Quarter: 2010Q1

REPORT INFORMATION
  Report Type: 
  Country: None (occurrence: None)
  Receive Date: 20100121
  Receipt Date: 20100114
  Transmission Date: 20100710
  Serious: Yes (Other)
  Sender: FDA-Public Use
  Company Number: PHHY2009JP29352

PATIENT
  Age: 50 Year
  Sex: Female

DRUGS (1)
  1. NEORAL [Suspect]
     Indication: APLASTIC ANAEMIA
     Dosage: UNK
     Route: 048
     Dates: start: 20060101

REACTIONS (2)
  - LOW DENSITY LIPOPROTEIN INCREASED [None]
  - RHABDOMYOLYSIS [None]
